FAERS Safety Report 16746556 (Version 1)
Quarter: 2019Q3

REPORT INFORMATION
  Report Type: Spontaneous
  Country: US (occurrence: US)
  Receive Date: 20190709
  Receipt Date: 20190709
  Transmission Date: 20191005
  Serious: No
  Sender: FDA-Public Use
  Company Number: None

PATIENT
  Sex: Female

DRUGS (1)
  1. FULL SPECTRUM DEEP SLEEP 750MG [Suspect]
     Active Substance: CANNABIDIOL\HERBALS
     Dosage: ?          OTHER ROUTE:INTERNAL?

REACTIONS (1)
  - Urticaria [None]
